FAERS Safety Report 8997410 (Version 2)
Quarter: 2013Q1

REPORT INFORMATION
  Report Type: Spontaneous
  Country: US (occurrence: US)
  Receive Date: 20130104
  Receipt Date: 20130201
  Transmission Date: 20140127
  Serious: No
  Sender: FDA-Public Use
  Company Number: US-ASTRAZENECA-2012SE94926

PATIENT
  Sex: Male

DRUGS (2)
  1. SYMBICORT [Suspect]
     Indication: EMPHYSEMA
     Dosage: 160/4.5 MG, BID
     Route: 055
     Dates: start: 20121202
  2. PREDNISONE [Concomitant]
     Indication: DYSPNOEA

REACTIONS (2)
  - Malaise [Unknown]
  - Drug dose omission [Unknown]
